FAERS Safety Report 14483092 (Version 1)
Quarter: 2018Q1

REPORT INFORMATION
  Report Type: Spontaneous
  Country: US (occurrence: US)
  Receive Date: 20180203
  Receipt Date: 20180203
  Transmission Date: 20180509
  Serious: No
  Sender: FDA-Public Use
  Company Number: US-JNJFOC-20180124741

PATIENT
  Sex: Male
  Weight: 60.3 kg

DRUGS (15)
  1. CALCIUM CARBONATE. [Concomitant]
     Active Substance: CALCIUM CARBONATE
     Route: 048
  2. FLOVENT [Concomitant]
     Active Substance: FLUTICASONE PROPIONATE
     Route: 065
  3. REMICADE [Suspect]
     Active Substance: INFLIXIMAB
     Indication: ANKYLOSING SPONDYLITIS
     Route: 042
     Dates: start: 20171018
  4. ALBUTEROL. [Concomitant]
     Active Substance: ALBUTEROL
     Route: 045
  5. VITAMIN D3 [Concomitant]
     Active Substance: CHOLECALCIFEROL
     Route: 048
  6. REMICADE [Suspect]
     Active Substance: INFLIXIMAB
     Indication: ANKYLOSING SPONDYLITIS
     Route: 042
  7. CELEBREX [Concomitant]
     Active Substance: CELECOXIB
     Route: 048
  8. CLOZARIL [Concomitant]
     Active Substance: CLOZAPINE
     Route: 048
  9. ROBINUL [Concomitant]
     Active Substance: GLYCOPYRROLATE
     Indication: SALIVARY HYPERSECRETION
     Route: 048
  10. REMICADE [Suspect]
     Active Substance: INFLIXIMAB
     Indication: CROHN^S DISEASE
     Route: 042
  11. REMICADE [Suspect]
     Active Substance: INFLIXIMAB
     Indication: ANKYLOSING SPONDYLITIS
     Route: 042
     Dates: start: 20170104
  12. REMICADE [Suspect]
     Active Substance: INFLIXIMAB
     Indication: CROHN^S DISEASE
     Route: 042
     Dates: start: 20171018
  13. CLARITIN [Concomitant]
     Active Substance: LORATADINE
     Route: 048
  14. REMICADE [Suspect]
     Active Substance: INFLIXIMAB
     Indication: CROHN^S DISEASE
     Route: 042
     Dates: start: 20170104
  15. FERROUS SULFATE. [Concomitant]
     Active Substance: FERROUS SULFATE
     Route: 048

REACTIONS (10)
  - Weight decreased [Unknown]
  - Anaemia [Recovering/Resolving]
  - Musculoskeletal stiffness [Unknown]
  - Back pain [Unknown]
  - C-reactive protein increased [Unknown]
  - Joint range of motion decreased [Unknown]
  - Musculoskeletal pain [Unknown]
  - Dizziness [Unknown]
  - Abdominal pain upper [Unknown]
  - Gait disturbance [Unknown]
